FAERS Safety Report 8215148-3 (Version None)
Quarter: 2012Q1

REPORT INFORMATION
  Report Type: 
  Country: None (occurrence: None)
  Receive Date: 20120316
  Receipt Date: 20120307
  Transmission Date: 20120608
  Serious: Yes (Hospitalization, Other)
  Sender: FDA-Public Use
  Company Number: PT-BAYER-2012-022662

PATIENT
  Age: 35 Year
  Sex: Female

DRUGS (5)
  1. L-CARNITINE [Concomitant]
     Indication: WEIGHT CONTROL
  2. DROSPIRENONE AND ETHINYL ESTRADIOL [Suspect]
  3. FOOD SUPPLEMENT [Concomitant]
  4. ETHYL LOFLAZEPATE [Concomitant]
  5. ALPRAZOLAM [Concomitant]
     Dosage: UNK UNK, PRN

REACTIONS (10)
  - CEREBRAL ISCHAEMIA [None]
  - ABNORMAL BEHAVIOUR [None]
  - LEUKOCYTOSIS [None]
  - CSF GLUCOSE INCREASED [None]
  - AGITATION [None]
  - EXTENSOR PLANTAR RESPONSE [None]
  - UNEVALUABLE EVENT [None]
  - LOSS OF CONSCIOUSNESS [None]
  - LYMPHOCYTOSIS [None]
  - INCOHERENT [None]
